FAERS Safety Report 8024368-2 (Version None)
Quarter: 2012Q1

REPORT INFORMATION
  Report Type: 
  Country: None (occurrence: None)
  Receive Date: 20120105
  Receipt Date: 20120105
  Transmission Date: 20120608
  Serious: Yes (Other)
  Sender: FDA-Public Use
  Company Number: None

PATIENT
  Age: 72 Year
  Sex: Female
  Weight: 68.038 kg

DRUGS (1)
  1. BONIVA [Suspect]
     Indication: OSTEOPOROSIS
     Dosage: 1 INFUSION
     Dates: start: 20110324, end: 20110324

REACTIONS (8)
  - INSOMNIA [None]
  - PARAESTHESIA [None]
  - OSTEOPOROSIS [None]
  - ACTIVITIES OF DAILY LIVING IMPAIRED [None]
  - MASS [None]
  - ARTHRITIS [None]
  - PAIN [None]
  - CONDITION AGGRAVATED [None]
